FAERS Safety Report 5131589-5 (Version None)
Quarter: 2006Q4

REPORT INFORMATION
  Report Type: 
  Country: None (occurrence: None)
  Receive Date: 20061020
  Receipt Date: 20061016
  Transmission Date: 20070319
  Serious: Yes (Other)
  Sender: FDA-Public Use
  Company Number: NO-SANOFI-SYNTHELABO-A01200608733

PATIENT
  Age: 69 Year
  Sex: Male

DRUGS (2)
  1. XELODA [Suspect]
     Dosage: UNK
  2. OXALIPLATIN [Suspect]
     Dosage: UNK

REACTIONS (1)
  - RENAL FAILURE ACUTE [None]
